FAERS Safety Report 7731077-3 (Version None)
Quarter: 2011Q3

REPORT INFORMATION
  Report Type: 
  Country: None (occurrence: None)
  Receive Date: 20110906
  Receipt Date: 20110906
  Transmission Date: 20111222
  Serious: Yes (Other)
  Sender: FDA-Public Use
  Company Number: None

PATIENT
  Sex: Female
  Weight: 106.59 kg

DRUGS (1)
  1. NAPROSYN [Suspect]
     Indication: OSTEOARTHRITIS
     Dosage: 500
     Route: 048
     Dates: start: 20090101, end: 20110601

REACTIONS (1)
  - TACHYCARDIA [None]
